FAERS Safety Report 10070954 (Version 2)
Quarter: 2014Q2

REPORT INFORMATION
  Report Type: Report from Study
  Country: FR (occurrence: FR)
  Receive Date: 20140410
  Receipt Date: 20140410
  Transmission Date: 20141212
  Serious: Yes (Hospitalization, Disabling)
  Sender: FDA-Public Use
  Company Number: PHHO2014FR001783

PATIENT
  Sex: 0

DRUGS (5)
  1. IMATINIB [Suspect]
     Indication: ACUTE LYMPHOCYTIC LEUKAEMIA
     Dosage: 300 MG, DAILY
     Dates: start: 20130629, end: 20140121
  2. IMATINIB [Suspect]
     Dosage: UNK, UNK
     Dates: start: 20140210
  3. IMATINIB [Suspect]
     Dosage: UNK (D36 PHASE IIB)
     Dates: start: 20140217
  4. GLUCOCORTICOIDS [Suspect]
     Dosage: UNK
  5. L-ASPARAGINASE [Suspect]

REACTIONS (3)
  - Amyotrophy [Recovered/Resolved]
  - Renal tubular disorder [Recovering/Resolving]
  - Hepatocellular injury [Recovered/Resolved]
